FAERS Safety Report 21933194 (Version 2)
Quarter: 2023Q2

REPORT INFORMATION
  Report Type: Spontaneous
  Country: US (occurrence: US)
  Receive Date: 20230131
  Receipt Date: 20230428
  Transmission Date: 20230722
  Serious: Yes (Other)
  Sender: FDA-Public Use
  Company Number: US-BRISTOL-MYERS SQUIBB COMPANY-2023-012480

PATIENT
  Age: 74 Year
  Sex: Female
  Weight: 77.11 kg

DRUGS (1)
  1. REVLIMID [Suspect]
     Active Substance: LENALIDOMIDE
     Indication: Plasma cell myeloma
     Dosage: DAILY X 21 DAYS ON AND 7 DAYS OFF
     Route: 048
     Dates: start: 20211027

REACTIONS (7)
  - Laboratory test abnormal [Not Recovered/Not Resolved]
  - Blood disorder [Not Recovered/Not Resolved]
  - Decreased appetite [Not Recovered/Not Resolved]
  - Neuropathy peripheral [Not Recovered/Not Resolved]
  - Weight decreased [Not Recovered/Not Resolved]
  - Drug ineffective [Not Recovered/Not Resolved]
  - Dysphonia [Not Recovered/Not Resolved]
